FAERS Safety Report 5058477-7 (Version None)
Quarter: 2006Q3

REPORT INFORMATION
  Report Type: 
  Country: None (occurrence: None)
  Receive Date: 20060719
  Receipt Date: 20060710
  Transmission Date: 20061208
  Serious: Yes (Hospitalization)
  Sender: FDA-Public Use
  Company Number: 14389

PATIENT
  Age: 62 Year
  Sex: Male

DRUGS (13)
  1. DEXAMETHASONE TAB [Suspect]
     Indication: CERVIX CARCINOMA RECURRENT
     Dosage: 40 MG DAILY IV
     Route: 030
     Dates: start: 20060524, end: 20060527
  2. DOXORUBICINE [Suspect]
     Dosage: 100 MG DAILY IV
     Route: 042
     Dates: start: 20060527, end: 20060528
  3. VINCRISTINE [Suspect]
     Dosage: 2 MG DAILY IV
     Route: 042
     Dates: start: 20060527, end: 20060527
  4. CYCLOPHOSPHAMIDE [Suspect]
     Dosage: 620 MG BID IV
     Route: 042
     Dates: start: 20060524, end: 20060526
  5. RITUXIMAB [Suspect]
     Dosage: 780 MG DAILY
     Dates: start: 20060529, end: 20060529
  6. NEUPOGEN [Concomitant]
  7. FLUCONAZOLE [Concomitant]
  8. LEVOFLOXACIN [Concomitant]
  9. VALACYCLOVIR HCL [Concomitant]
  10. HALOPURINOL [Concomitant]
  11. CEFTRIAXONE [Concomitant]
  12. TAZOCIN [Concomitant]
  13. HYDROCORTISONE TAB [Concomitant]

REACTIONS (3)
  - CHILLS [None]
  - DIARRHOEA [None]
  - FEBRILE NEUTROPENIA [None]
